FAERS Safety Report 25156246 (Version 1)
Quarter: 2025Q2

REPORT INFORMATION
  Report Type: Spontaneous
  Country: TR (occurrence: TR)
  Receive Date: 20250403
  Receipt Date: 20250403
  Transmission Date: 20250717
  Serious: Yes (Death, Other)
  Sender: JOHNSON AND JOHNSON
  Company Number: TR-JNJFOC-20250404347

PATIENT
  Age: 12 Year
  Sex: Female

DRUGS (1)
  1. YONDELIS [Suspect]
     Active Substance: TRABECTEDIN
     Indication: Sarcoma
     Route: 042

REACTIONS (4)
  - Respiratory distress [Fatal]
  - Septic shock [Fatal]
  - Toxic erythema of chemotherapy [Unknown]
  - Off label use [Unknown]
